FAERS Safety Report 9298992 (Version 2)
Quarter: 2014Q2

REPORT INFORMATION
  Report Type: Spontaneous
  Country: US (occurrence: US)
  Receive Date: 20130520
  Receipt Date: 20140516
  Transmission Date: 20141212
  Serious: No
  Sender: FDA-Public Use
  Company Number: US-SANOFI-AVENTIS-2013SA038839

PATIENT
  Age: 84 Year
  Sex: Female

DRUGS (2)
  1. APIDRA SOLOSTAR [Suspect]
     Indication: TYPE 2 DIABETES MELLITUS
     Dosage: DOSE- 3- 5 UNITS
     Route: 058
     Dates: start: 20130227
  2. SOLOSTAR [Suspect]
     Indication: TYPE 2 DIABETES MELLITUS
     Dates: start: 20130227

REACTIONS (5)
  - Visual acuity reduced [Unknown]
  - Blood glucose increased [Unknown]
  - Expired product administered [Unknown]
  - Drug ineffective [Unknown]
  - Incorrect product storage [Unknown]
